FAERS Safety Report 24566715 (Version 1)
Quarter: 2024Q4

REPORT INFORMATION
  Report Type: Spontaneous
  Country: US (occurrence: None)
  Receive Date: 20241030
  Receipt Date: 20241030
  Transmission Date: 20250115
  Serious: Yes (Other)
  Sender: Public
  Company Number: None

PATIENT
  Age: 75 Year
  Sex: Female
  Weight: 89 kg

DRUGS (16)
  1. AVIBACTAM SODIUM\CEFTAZIDIME [Suspect]
     Active Substance: AVIBACTAM SODIUM\CEFTAZIDIME
     Indication: Pneumonia
     Dosage: FREQUENCY : 3 TIMES A DAY;?
     Route: 042
     Dates: start: 20240920, end: 20240922
  2. MELATONIN [Concomitant]
     Active Substance: MELATONIN
  3. FAMOTIDINE [Concomitant]
     Active Substance: FAMOTIDINE
  4. GUAIFENESIN [Concomitant]
     Active Substance: GUAIFENESIN
  5. HYDROCORTISONE SODIUM SUCCINATE [Concomitant]
     Active Substance: HYDROCORTISONE SODIUM SUCCINATE
  6. METOCLOPRAMIDE [Concomitant]
     Active Substance: METOCLOPRAMIDE
  7. MAGNESIUM SULFATE [Concomitant]
     Active Substance: MAGNESIUM SULFATE
  8. CALCIUM GLUCONATE [Concomitant]
     Active Substance: CALCIUM GLUCONATE
  9. SOTALOL [Concomitant]
     Active Substance: SOTALOL\SOTALOL HYDROCHLORIDE
  10. PRAMIPEXOLE [Concomitant]
     Active Substance: PRAMIPEXOLE\PRAMIPEXOLE DIHYDROCHLORIDE
  11. LEVOTHYROXINE [Concomitant]
     Active Substance: LEVOTHYROXINE
  12. ISOSORBIDE [Concomitant]
     Active Substance: ISOSORBIDE
  13. GABAPENTIN [Concomitant]
     Active Substance: GABAPENTIN
  14. DULOXETINE [Concomitant]
     Active Substance: DULOXETINE
  15. ATORVASTATIN [Concomitant]
     Active Substance: ATORVASTATIN
  16. ASPIRIN [Concomitant]
     Active Substance: ASPIRIN

REACTIONS (3)
  - Neurological symptom [None]
  - Dyskinesia [None]
  - Dysarthria [None]

NARRATIVE: CASE EVENT DATE: 20240922
